FAERS Safety Report 9150041 (Version 3)
Quarter: 2019Q4

REPORT INFORMATION
  Report Type: Report from Study
  Country: BE (occurrence: BE)
  Receive Date: 20130308
  Receipt Date: 20191205
  Transmission Date: 20200122
  Serious: Yes (Other)
  Sender: FDA-Public Use
  Company Number: PHHY2013BE022796

PATIENT
  Age: 45 Year
  Sex: Female
  Weight: 56 kg

DRUGS (3)
  1. PARACETAMOL [Concomitant]
     Active Substance: ACETAMINOPHEN
     Indication: PAIN
     Route: 065
  2. GILENYA [Suspect]
     Active Substance: FINGOLIMOD HYDROCHLORIDE
     Indication: MULTIPLE SCLEROSIS
     Dosage: 0.5 MG, QD
     Route: 048
     Dates: start: 20121109
  3. ELTHYRONE [Concomitant]
     Active Substance: LEVOTHYROXINE
     Indication: HYPOTHYROIDISM
     Dosage: 100 MG, UNK
     Route: 065

REACTIONS (35)
  - Low density lipoprotein increased [Unknown]
  - Gamma-glutamyltransferase increased [Unknown]
  - Visual impairment [Recovered/Resolved]
  - Eye disorder [Recovered/Resolved]
  - Constipation [Unknown]
  - Thyroiditis [Unknown]
  - Keratomalacia [Unknown]
  - Blood cholesterol increased [Unknown]
  - Limb discomfort [Recovered/Resolved]
  - Oesophagitis [Unknown]
  - Presyncope [Recovered/Resolved]
  - Fatigue [Recovered/Resolved]
  - Road traffic accident [Unknown]
  - Alanine aminotransferase increased [Unknown]
  - Malaise [Unknown]
  - Abdominal pain [Unknown]
  - Libido decreased [Unknown]
  - Memory impairment [Unknown]
  - Blood alkaline phosphatase decreased [Unknown]
  - Blood bilirubin increased [Unknown]
  - Hydronephrosis [Unknown]
  - Aspartate aminotransferase increased [Unknown]
  - Decreased appetite [Recovered/Resolved]
  - Haemorrhoids [Unknown]
  - Amnesia [Unknown]
  - Vision blurred [Recovered/Resolved]
  - Dysphagia [Unknown]
  - Uterine leiomyoma [Unknown]
  - Ureterolithiasis [Unknown]
  - White blood cell count decreased [Unknown]
  - Arthralgia [Unknown]
  - Hot flush [Unknown]
  - Lymphocyte count decreased [Unknown]
  - Weight decreased [Unknown]
  - Myalgia [Unknown]

NARRATIVE: CASE EVENT DATE: 20130111
